FAERS Safety Report 9410575 (Version 1)
Quarter: 2013Q3

REPORT INFORMATION
  Report Type: Spontaneous
  Country: FR (occurrence: FR)
  Receive Date: 20130719
  Receipt Date: 20130719
  Transmission Date: 20140515
  Serious: Yes (Other)
  Sender: FDA-Public Use
  Company Number: FR-UCBSA-091656

PATIENT
  Age: 73 Year
  Sex: Male

DRUGS (14)
  1. KEPPRA [Suspect]
     Indication: METASTASIS
     Dosage: DAILY DOSE-1000 MG/DAY
     Route: 048
  2. DIFFU-K [Suspect]
     Indication: HYPOKALAEMIA
     Dosage: DAILY DOSE-2 DF /DAY
     Route: 048
  3. KARDEGIC [Suspect]
     Dosage: DAILY DOSE-160 MG
     Route: 048
  4. HUMALOG [Suspect]
     Indication: DIABETES MELLITUS
     Route: 058
  5. TAHOR [Suspect]
     Dosage: DAILY DOSE- 80MG
     Route: 048
  6. INEXIUM [Suspect]
     Indication: GASTROOESOPHAGEAL REFLUX DISEASE
     Dosage: DAILY DOSE-20 MG/ DAY
     Route: 048
  7. ADANCOR [Suspect]
     Indication: ANGINA PECTORIS
     Route: 048
  8. SECTRAL [Suspect]
     Indication: ANGINA PECTORIS
     Dosage: 200 MG /D
     Route: 048
  9. COVERSYL [Suspect]
     Indication: CARDIAC FAILURE
     Dosage: DAILY DOSE-2.5  MG/DAY
     Route: 048
  10. XATRAL [Suspect]
     Dosage: DAILY DOSE-10 MG/DAY
     Route: 048
  11. CORTANCYL [Suspect]
     Route: 048
  12. PERINDOPRIL [Suspect]
     Indication: CARDIAC FAILURE
     Dosage: DAILY DOSE- 2 MG/DAY
     Route: 048
  13. LEVEMIR [Suspect]
     Indication: DIABETES MELLITUS
     Route: 058
  14. TARCEVA [Suspect]
     Indication: LUNG NEOPLASM MALIGNANT
     Route: 048
     Dates: start: 201302

REACTIONS (1)
  - Haematoma [Recovering/Resolving]
